FAERS Safety Report 14578670 (Version 2)
Quarter: 2018Q1

REPORT INFORMATION
  Report Type: Spontaneous
  Country: IT (occurrence: IT)
  Receive Date: 20180227
  Receipt Date: 20180306
  Transmission Date: 20180509
  Serious: Yes (Life-Threatening, Other)
  Sender: FDA-Public Use
  Company Number: PHHY2017IT196137

PATIENT
  Age: 72 Year
  Sex: Female

DRUGS (1)
  1. ALLOPURINOL. [Suspect]
     Active Substance: ALLOPURINOL
     Indication: PRODUCT USED FOR UNKNOWN INDICATION
     Dosage: UNK
     Route: 065

REACTIONS (10)
  - Corneal scar [Unknown]
  - Toxic epidermal necrolysis [Recovering/Resolving]
  - Trichiasis [Recovered/Resolved]
  - Conjunctival hyperaemia [Recovered/Resolved]
  - Corneal thinning [Recovered/Resolved]
  - Corneal opacity [Recovered/Resolved]
  - Ulcerative keratitis [Recovered/Resolved]
  - Madarosis [Recovered/Resolved]
  - Conjunctivitis [Recovered/Resolved]
  - Meibomian gland dysfunction [Recovered/Resolved]
